FAERS Safety Report 9133544 (Version 1)
Quarter: 2013Q1

REPORT INFORMATION
  Report Type: Spontaneous
  Country: BR (occurrence: BR)
  Receive Date: 20130301
  Receipt Date: 20130301
  Transmission Date: 20140127
  Serious: Yes (Other)
  Sender: FDA-Public Use
  Company Number: BR-ROXANE LABORATORIES, INC.-2013-RO-00307RO

PATIENT
  Age: 41 Year
  Sex: Female

DRUGS (9)
  1. LEVOTHYROXINE [Suspect]
     Indication: HYPOTHYROIDISM
     Dosage: 25 MCG
  2. LEVOTHYROXINE [Suspect]
     Dosage: 125 MCG
  3. HYDROCHLOROTHIAZIDE [Suspect]
     Indication: HYPERTENSION
     Dosage: 12.5 MG
  4. ENALAPRIL [Suspect]
     Indication: HYPERTENSION
     Dosage: 40 MG
  5. AZATHIOPRINE [Suspect]
     Indication: RENAL TRANSPLANT
     Dosage: 100 MG
  6. CYCLOSPORINE [Suspect]
     Indication: RENAL TRANSPLANT
     Dosage: 250 MG
  7. FERROUS SULFATE [Suspect]
     Indication: ANAEMIA
     Dosage: 120 MG
  8. METHYLDOPA [Suspect]
     Indication: HYPERTENSION
     Dosage: 1 G
  9. METHYLDOPA [Suspect]
     Dosage: 2 G

REACTIONS (4)
  - Urinary tract infection [Recovered/Resolved]
  - Hypertension [Recovered/Resolved]
  - Foetal growth restriction [Recovered/Resolved]
  - Blood thyroid stimulating hormone increased [Recovered/Resolved]
